FAERS Safety Report 19471741 (Version 2)
Quarter: 2021Q3

REPORT INFORMATION
  Report Type: Report from Study
  Country: GB (occurrence: GB)
  Receive Date: 20210629
  Receipt Date: 20210714
  Transmission Date: 20211014
  Serious: Yes (Other)
  Sender: FDA-Public Use
  Company Number: GB-B.I. PHARMACEUTICALS,INC./RIDGEFIELD-2021-BI-108568

PATIENT
  Age: 63 Year
  Sex: Female

DRUGS (20)
  1. JARDIANCE [Suspect]
     Active Substance: EMPAGLIFLOZIN
     Indication: PRODUCT USED FOR UNKNOWN INDICATION
     Dosage: 10 MG, QD
     Route: 065
  2. SANDOSTATIN [Suspect]
     Active Substance: OCTREOTIDE ACETATE
     Indication: NEUROENDOCRINE TUMOUR
     Dosage: 40 MILLIGRAM, Q3WEEKS
     Route: 030
  3. XERMELO [Suspect]
     Active Substance: TELOTRISTAT ETHYL
     Dosage: XERMELO 250 MG THREE TIMES A DAY
  4. ALOGLIPTIN. [Suspect]
     Active Substance: ALOGLIPTIN
     Dosage: 25 MG, QD
     Route: 065
  5. TELOTRISTAT. [Concomitant]
     Active Substance: TELOTRISTAT
     Indication: PRODUCT USED FOR UNKNOWN INDICATION
     Dosage: TID, 3 IN 1 DAY
     Route: 065
  6. ALOGLIPTIN. [Suspect]
     Active Substance: ALOGLIPTIN
     Dosage: ALOGLIPTIN 25MG DAILY
  7. JARDIANCE [Suspect]
     Active Substance: EMPAGLIFLOZIN
     Dosage: JARDIANCE 10 MG ONCE A DAY
  8. LANSOPRAZOLE. [Suspect]
     Active Substance: LANSOPRAZOLE
     Dosage: UNK
     Route: 065
  9. SANDOSTATIN [Suspect]
     Active Substance: OCTREOTIDE ACETATE
     Dosage: 20 MILLIGRAM
     Route: 030
  10. TELOTRISTAT. [Concomitant]
     Active Substance: TELOTRISTAT
     Indication: PRODUCT USED FOR UNKNOWN INDICATION
     Dosage: BID, 2 IN 1 DAY
     Route: 065
  11. XERMELO [Suspect]
     Active Substance: TELOTRISTAT ETHYL
     Indication: PRODUCT USED FOR UNKNOWN INDICATION
     Dosage: 250 MILLIGRAM, TID
     Route: 048
  12. TELOTRISTAT. [Concomitant]
     Active Substance: TELOTRISTAT
     Dosage: TID
     Route: 065
  13. SANDOSTATIN [Suspect]
     Active Substance: OCTREOTIDE ACETATE
     Dosage: 30 MILLIGRAM, MONTHLY
     Route: 030
  14. SANDOSTATIN [Suspect]
     Active Substance: OCTREOTIDE ACETATE
     Dosage: SANDOSTATIN 40 MG EVERY 3 WEEKS
     Route: 030
  15. LANSOPRAZOLE. [Suspect]
     Active Substance: LANSOPRAZOLE
     Indication: PRODUCT USED FOR UNKNOWN INDICATION
     Dosage: LANSOPRAZOLE MAX DOSE
  16. JARDIANCE [Suspect]
     Active Substance: EMPAGLIFLOZIN
     Indication: PRODUCT USED FOR UNKNOWN INDICATION
     Dosage: 10 MILLIGRAM, QD
     Route: 065
  17. ALOGLIPTIN. [Suspect]
     Active Substance: ALOGLIPTIN
     Indication: DIABETES MELLITUS
     Dosage: 25 MILLIGRAM, QD
     Route: 065
  18. PROCHLORPERAZINE. [Suspect]
     Active Substance: PROCHLORPERAZINE
     Dosage: 5 MILLIGRAM
     Route: 065
  19. PROCHLORPERAZINE. [Suspect]
     Active Substance: PROCHLORPERAZINE
     Indication: PRODUCT USED FOR UNKNOWN INDICATION
     Dosage: PROCHLORPERAZINE 5MG UNKNOWN?5 MG
  20. TELOTRISTAT. [Concomitant]
     Active Substance: TELOTRISTAT
     Dosage: BID
     Route: 065

REACTIONS (34)
  - Fall [Unknown]
  - Blood cholesterol increased [Unknown]
  - Flatulence [Unknown]
  - Coccydynia [Unknown]
  - Inappropriate schedule of product administration [Unknown]
  - Gastrooesophageal reflux disease [Unknown]
  - Weight decreased [Unknown]
  - Cholelithiasis [Unknown]
  - Drug ineffective [Unknown]
  - Night sweats [Unknown]
  - Abdominal tenderness [Unknown]
  - Malaise [Unknown]
  - Gallbladder polyp [Unknown]
  - Fall [Unknown]
  - Dyspnoea [Unknown]
  - Fatigue [Unknown]
  - Ear infection [Unknown]
  - Pain in extremity [Unknown]
  - Diarrhoea [Not Recovered/Not Resolved]
  - Cholecystitis [Unknown]
  - Dyspepsia [Unknown]
  - Feeling hot [Unknown]
  - Sciatica [Unknown]
  - Flushing [Not Recovered/Not Resolved]
  - Abdominal discomfort [Unknown]
  - Abdominal pain upper [Unknown]
  - Contusion [Unknown]
  - Cough [Unknown]
  - N-terminal prohormone brain natriuretic peptide increased [Unknown]
  - Abdominal pain [Unknown]
  - Nausea [Not Recovered/Not Resolved]
  - Neoplasm [Unknown]
  - Depressed mood [Unknown]
  - Needle issue [Unknown]

NARRATIVE: CASE EVENT DATE: 20200107
